FAERS Safety Report 24029571 (Version 6)
Quarter: 2025Q2

REPORT INFORMATION
  Report Type: Report from Study
  Country: US (occurrence: US)
  Receive Date: 20240628
  Receipt Date: 20250522
  Transmission Date: 20250716
  Serious: Yes (Hospitalization, Other)
  Sender: SANOFI AVENTIS
  Company Number: US-SA-2024SA181616

PATIENT
  Age: 61 Year
  Sex: Male

DRUGS (8)
  1. AGALSIDASE BETA [Suspect]
     Active Substance: AGALSIDASE BETA
     Indication: Fabry^s disease
     Dosage: 105 MG, QOW
     Route: 042
     Dates: start: 201609, end: 202408
  2. AGALSIDASE BETA [Suspect]
     Active Substance: AGALSIDASE BETA
     Dosage: 105 MG, QOW
     Route: 042
     Dates: start: 202409
  3. SODIUM CHLORIDE [Concomitant]
     Active Substance: SODIUM CHLORIDE
     Route: 065
  4. STERILE WATER [Concomitant]
     Active Substance: WATER
     Route: 065
  5. SODIUM CHLORIDE [Concomitant]
     Active Substance: SODIUM CHLORIDE
  6. SODIUM CHLORIDE [Concomitant]
     Active Substance: SODIUM CHLORIDE
  7. BELLA [Concomitant]
  8. TACROLIMUS [Concomitant]
     Active Substance: TACROLIMUS

REACTIONS (13)
  - Atrial fibrillation [Unknown]
  - Heart rate decreased [Unknown]
  - Occipital lobe stroke [Recovering/Resolving]
  - Visual field defect [Unknown]
  - Deafness [Unknown]
  - Condition aggravated [Unknown]
  - Memory impairment [Unknown]
  - Norovirus infection [Unknown]
  - Renal transplant [Unknown]
  - Lethargy [Unknown]
  - Pneumonia [Unknown]
  - Weight increased [Unknown]
  - Blood pressure increased [Unknown]

NARRATIVE: CASE EVENT DATE: 20240819
